FAERS Safety Report 6508280-3 (Version None)
Quarter: 2009Q4

REPORT INFORMATION
  Report Type: 
  Country: None (occurrence: None)
  Receive Date: 20091221
  Receipt Date: 20091028
  Transmission Date: 20100525
  Serious: No
  Sender: FDA-Public Use
  Company Number: US-ASTRAZENECA-2007UW06112

PATIENT
  Age: 77 Year
  Sex: Female
  Weight: 59.9 kg

DRUGS (10)
  1. CRESTOR [Suspect]
     Route: 048
     Dates: start: 20070325
  2. CRESTOR [Suspect]
     Route: 048
     Dates: start: 20081001
  3. LOTREL [Concomitant]
     Route: 065
  4. LORAZEPAM [Concomitant]
     Indication: SLEEP DISORDER
     Route: 065
  5. ADVIL [Concomitant]
     Indication: ARTHRITIS
     Route: 065
  6. EXFORGE [Concomitant]
     Indication: HYPERTENSION
     Route: 065
  7. VESICARE [Concomitant]
     Indication: HYPERTONIC BLADDER
     Route: 065
  8. SINGULAIR [Concomitant]
     Indication: MULTIPLE ALLERGIES
     Route: 065
  9. ATIVAN [Concomitant]
     Indication: ANXIETY
     Route: 065
  10. ATIVAN [Concomitant]
     Indication: INSOMNIA
     Route: 065

REACTIONS (2)
  - FOOD POISONING [None]
  - POLLAKIURIA [None]
